FAERS Safety Report 22536872 (Version 1)
Quarter: 2023Q2

REPORT INFORMATION
  Report Type: Spontaneous
  Country: US (occurrence: US)
  Receive Date: 20230608
  Receipt Date: 20230608
  Transmission Date: 20230721
  Serious: No
  Sender: FDA-Public Use
  Company Number: US-LEO Pharma-352561

PATIENT
  Sex: Female

DRUGS (1)
  1. ADBRY [Suspect]
     Active Substance: TRALOKINUMAB-LDRM
     Indication: Dermatitis atopic
     Dosage: DOSAGE : 4 SYRINGES UNDER THE SKIN ON DAY 1., INJECT 2 SYRINGES UNDER THE SKIN EVERY 2 WEEKS
     Dates: end: 202305

REACTIONS (2)
  - Headache [Unknown]
  - Arthralgia [Unknown]
